FAERS Safety Report 5359243-5 (Version None)
Quarter: 2007Q2

REPORT INFORMATION
  Report Type: 
  Country: None (occurrence: None)
  Receive Date: 20070615
  Receipt Date: 20070605
  Transmission Date: 20071010
  Serious: Yes (Death)
  Sender: FDA-Public Use
  Company Number: JP-SANOFI-SYNTHELABO-A01200602228

PATIENT
  Sex: Male
  Weight: 54 kg

DRUGS (3)
  1. LEUCOVORIN CALCIUM [Suspect]
     Indication: RECTAL CANCER
     Dosage: 125 MG/BODY=82.8 MG/M2 INFUSION D1-2
     Route: 042
     Dates: start: 20060218, end: 20060219
  2. OXALIPLATIN [Suspect]
     Indication: RECTAL CANCER
     Dosage: 100 MG/BODY
     Route: 042
     Dates: start: 20051027, end: 20060218
  3. FLUOROURACIL [Suspect]
     Indication: RECTAL CANCER
     Dosage: 400 MG/BODY=264.9 MG/M2 BOLUS THEN 600 MG/BODY=397.4 MG/M2 INFUSION D1-2
     Route: 042
     Dates: start: 20060218, end: 20060219

REACTIONS (1)
  - PULMONARY TUBERCULOSIS [None]
